FAERS Safety Report 18931184 (Version 1)
Quarter: 2021Q1

REPORT INFORMATION
  Report Type: Spontaneous
  Country: IT (occurrence: IT)
  Receive Date: 20210224
  Receipt Date: 20210224
  Transmission Date: 20210420
  Serious: Yes (Other)
  Sender: FDA-Public Use
  Company Number: IT-LUPIN PHARMACEUTICALS INC.-2021-02199

PATIENT
  Age: 86 Year
  Sex: Female

DRUGS (5)
  1. DELORAZEPAM [Concomitant]
     Active Substance: DELORAZEPAM
     Indication: ANXIETY
     Dosage: 1 MILLIGRAM PER MILLILITRE, QD (FIVE DROPS)
     Route: 065
  2. TRAZODONE [Concomitant]
     Active Substance: TRAZODONE HYDROCHLORIDE
     Indication: PRODUCT USED FOR UNKNOWN INDICATION
     Dosage: 60 MILLIGRAM PER MILLILITRE (THREE DROPS)
     Route: 065
  3. HYDROXYCHLOROQUINE [Suspect]
     Active Substance: HYDROXYCHLOROQUINE
     Indication: COVID-19
     Dosage: UNK
     Route: 065
     Dates: start: 202004
  4. FUROSEMIDE. [Concomitant]
     Active Substance: FUROSEMIDE
     Indication: HYPERTENSION
     Dosage: 1 DOSAGE FORM (THREE TIMES A WEEK)
     Route: 065
  5. AZITHROMYCIN ANHYDROUS. [Suspect]
     Active Substance: AZITHROMYCIN ANHYDROUS
     Indication: COVID-19
     Dosage: UNK
     Route: 065
     Dates: start: 202004

REACTIONS (1)
  - Off label use [Unknown]
